FAERS Safety Report 7622089-9 (Version None)
Quarter: 2011Q3

REPORT INFORMATION
  Report Type: 
  Country: None (occurrence: None)
  Receive Date: 20110720
  Receipt Date: 20110128
  Transmission Date: 20111222
  Serious: Yes (Hospitalization, Other)
  Sender: FDA-Public Use
  Company Number: US-BAYER-201037646NA

PATIENT
  Age: 49 Year
  Sex: Female
  Weight: 81.633 kg

DRUGS (6)
  1. DROSPIRENONE AND ETHINYL ESTRADIOL [Suspect]
     Indication: ACNE
  2. OVCON-35 [Concomitant]
  3. HERBAL PREPARATION [Concomitant]
  4. YAZ [Suspect]
     Indication: ACNE
  5. YASMIN [Suspect]
     Indication: ACNE
     Dosage: UNK
     Dates: start: 20060101
  6. MULTIVITAMIN PREPARATION + MINERAL SUPPLEMENT [Concomitant]

REACTIONS (4)
  - PULMONARY EMBOLISM [None]
  - PERICARDIAL EFFUSION [None]
  - COR PULMONALE ACUTE [None]
  - DYSPNOEA [None]
